FAERS Safety Report 6302048-9 (Version None)
Quarter: 2009Q3

REPORT INFORMATION
  Report Type: 
  Country: None (occurrence: None)
  Receive Date: 20090807
  Receipt Date: 20090728
  Transmission Date: 20100115
  Serious: Yes (Death)
  Sender: FDA-Public Use
  Company Number: JP-ABBOTT-09P-087-0589463-00

PATIENT
  Age: 90 Year
  Sex: Male

DRUGS (5)
  1. LEUPLIN SR FOR INJECTION 11.25 MG [Suspect]
     Indication: PROSTATE CANCER STAGE IV
     Route: 058
     Dates: start: 20060907, end: 20070816
  2. CASODEX [Concomitant]
     Indication: PROSTATE CANCER STAGE IV
     Route: 048
     Dates: start: 20061102, end: 20070917
  3. ASPIRIN [Concomitant]
     Indication: PROSTATE CANCER STAGE IV
     Route: 048
     Dates: end: 20070917
  4. SYMMETREL [Concomitant]
     Indication: CEREBRAL INFARCTION
     Route: 048
     Dates: end: 20070917
  5. MUCODYNE [Concomitant]
     Indication: GASTRITIS
     Dates: end: 20070917

REACTIONS (1)
  - ASPIRATION [None]
